FAERS Safety Report 5904937-3 (Version None)
Quarter: 2008Q3

REPORT INFORMATION
  Report Type: 
  Country: None (occurrence: None)
  Receive Date: 20080909
  Receipt Date: 20080326
  Transmission Date: 20090109
  Serious: Yes (Hospitalization)
  Sender: FDA-Public Use
  Company Number: 163-20785-08031794

PATIENT
  Age: 57 Year
  Sex: Male
  Weight: 76.6579 kg

DRUGS (15)
  1. THALOMID [Suspect]
     Indication: MULTIPLE MYELOMA
     Dosage: 200MG - 100MG, ORAL
     Route: 048
     Dates: start: 20041127, end: 20050425
  2. DEXAMETHASONE [Suspect]
     Indication: MULTIPLE MYELOMA
     Dosage: 40 MG
     Dates: start: 20041127, end: 20050507
  3. MELPHALAN (MELPHALAN) [Suspect]
     Indication: MULTIPLE MYELOMA
     Dosage: 200 MG/M2
     Dates: start: 20050216, end: 20050505
  4. ACYCLOVIR [Concomitant]
  5. ZOLOFT [Concomitant]
  6. TAMSULOSIN HCL [Concomitant]
  7. FLEXERIL [Concomitant]
  8. MORPHINE [Concomitant]
  9. MEGACE [Concomitant]
  10. ENOXAPARIN SODIUM [Concomitant]
  11. EPOGEN [Concomitant]
  12. IMODIUM [Concomitant]
  13. MVI (MVI) (TABLETS) [Concomitant]
  14. FOLIC ACID [Concomitant]
  15. HEPARIN [Concomitant]

REACTIONS (1)
  - SYNCOPE [None]
